FAERS Safety Report 24934112 (Version 1)
Quarter: 2025Q1

REPORT INFORMATION
  Report Type: Report from Study
  Country: US (occurrence: US)
  Receive Date: 20250206
  Receipt Date: 20250206
  Transmission Date: 20250409
  Serious: Yes (Hospitalization)
  Sender: EXELIXIS
  Company Number: US-EXELIXIS-CABO-24078327

PATIENT
  Sex: Female
  Weight: 72.562 kg

DRUGS (22)
  1. CABOMETYX [Suspect]
     Active Substance: CABOZANTINIB S-MALATE
     Indication: Chondrosarcoma
     Dosage: 40 MG, QD
     Route: 048
     Dates: start: 20240301
  2. CLARITIN [Concomitant]
     Active Substance: LORATADINE
  3. PROCHLORPERAZINE MALEATE [Concomitant]
     Active Substance: PROCHLORPERAZINE MALEATE
  4. AMBIEN [Concomitant]
     Active Substance: ZOLPIDEM TARTRATE
  5. SYMPROIC [Concomitant]
     Active Substance: NALDEMEDINE TOSYLATE
  6. BACLOFEN [Concomitant]
     Active Substance: BACLOFEN
  7. MIRALAX [Concomitant]
     Active Substance: POLYETHYLENE GLYCOL 3350
  8. FUROSEMIDE [Concomitant]
     Active Substance: FUROSEMIDE
  9. BUPIVACAINE HYDROCHLORIDE [Concomitant]
     Active Substance: BUPIVACAINE HYDROCHLORIDE
  10. HYDROMORPHONE HCL [Concomitant]
     Active Substance: HYDROMORPHONE HYDROCHLORIDE
  11. CLONIDINE HYDROCHLORIDE [Concomitant]
     Active Substance: CLONIDINE HYDROCHLORIDE
  12. CULTURELLE [Concomitant]
     Active Substance: LACTOBACILLUS RHAMNOSUS
  13. NIFEDIPINE [Concomitant]
     Active Substance: NIFEDIPINE
  14. ELIQUIS [Concomitant]
     Active Substance: APIXABAN
  15. OXYCODONE HYDROCHLORIDE [Concomitant]
     Active Substance: OXYCODONE HYDROCHLORIDE
  16. PANTOPRAZOLE SODIUM [Concomitant]
     Active Substance: PANTOPRAZOLE SODIUM
  17. DOCUSATE CALCIUM [Concomitant]
     Active Substance: DOCUSATE CALCIUM
  18. TYLENOL [Concomitant]
     Active Substance: ACETAMINOPHEN
  19. IRON [Concomitant]
     Active Substance: IRON
  20. PREGABALIN [Concomitant]
     Active Substance: PREGABALIN
  21. VITAMIN C [Concomitant]
     Active Substance: ASCORBIC ACID
  22. CALCIUM\VITAMIN D [Concomitant]
     Active Substance: CALCIUM\VITAMIN D

REACTIONS (2)
  - Constipation [Unknown]
  - Off label use [Unknown]
